FAERS Safety Report 9210550 (Version 1)
Quarter: 2013Q2

REPORT INFORMATION
  Report Type: Spontaneous
  Country: US (occurrence: US)
  Receive Date: 20130404
  Receipt Date: 20130404
  Transmission Date: 20140414
  Serious: No
  Sender: FDA-Public Use
  Company Number: US-PFIZER INC-2013104820

PATIENT
  Sex: Male

DRUGS (2)
  1. ZITHROMAX [Suspect]
     Dosage: UNK
  2. NORDITROPIN [Suspect]
     Dosage: 10 MG, UNK

REACTIONS (3)
  - Ear pain [Unknown]
  - Abdominal pain upper [Unknown]
  - Headache [Unknown]
